FAERS Safety Report 23168038 (Version 1)
Quarter: 2023Q4

REPORT INFORMATION
  Report Type: Spontaneous
  Country: CN (occurrence: CN)
  Receive Date: 20231109
  Receipt Date: 20231109
  Transmission Date: 20240110
  Serious: Yes (Other)
  Sender: FDA-Public Use
  Company Number: CN-AMGEN-CHNSP2023196231

PATIENT
  Age: 60 Year
  Sex: Male
  Weight: 70 kg

DRUGS (3)
  1. KYPROLIS [Suspect]
     Active Substance: CARFILZOMIB
     Indication: Plasma cell myeloma
     Dosage: 36.8 MILLIGRAM, QD
     Route: 042
     Dates: start: 20231019, end: 20231020
  2. STERILE WATER FOR INJECTION [Concomitant]
     Active Substance: WATER
     Indication: Plasma cell myeloma
     Dosage: 17.8 MILLILITER
     Route: 042
     Dates: start: 20231018, end: 20231020
  3. DEXTROSE [Concomitant]
     Active Substance: DEXTROSE\DEXTROSE MONOHYDRATE
     Indication: Plasma cell myeloma
     Dosage: 100 MILLILITER
     Route: 042
     Dates: start: 20231019, end: 20231020

REACTIONS (2)
  - Abdominal distension [Recovering/Resolving]
  - Diarrhoea [Recovering/Resolving]

NARRATIVE: CASE EVENT DATE: 20231021
